FAERS Safety Report 6376155-9 (Version None)
Quarter: 2009Q3

REPORT INFORMATION
  Report Type: 
  Country: None (occurrence: None)
  Receive Date: 20090921
  Receipt Date: 20090907
  Transmission Date: 20100115
  Serious: Yes (Other)
  Sender: FDA-Public Use
  Company Number: 2009AL005924

PATIENT
  Age: 69 Year
  Sex: Male

DRUGS (2)
  1. IBUPROFEN TABLETS [Suspect]
  2. EPIRUBICIN HCL [Suspect]

REACTIONS (1)
  - RENAL IMPAIRMENT [None]
